FAERS Safety Report 7367331-7 (Version None)
Quarter: 2011Q1

REPORT INFORMATION
  Report Type: 
  Country: None (occurrence: None)
  Receive Date: 20110322
  Receipt Date: 20110318
  Transmission Date: 20110831
  Serious: Yes (Other)
  Sender: FDA-Public Use
  Company Number: US-PFIZER INC-2011060482

PATIENT
  Sex: Male
  Weight: 149.6 kg

DRUGS (8)
  1. METHOTREXATE [Concomitant]
     Indication: ARTHRITIS
     Dosage: UNK
  2. HYTRIN [Concomitant]
     Indication: HYPERTENSION
     Dosage: UNK
  3. METFORMIN [Concomitant]
     Indication: DIABETES MELLITUS
     Dosage: UNK
  4. ATENOLOL [Concomitant]
     Indication: HYPERTENSION
     Dosage: UNK
  5. ADVIL LIQUI-GELS [Suspect]
     Indication: ARTHRALGIA
  6. FOLIC ACID [Concomitant]
     Indication: ARTHRITIS
     Dosage: UNK
  7. ADVIL LIQUI-GELS [Suspect]
     Indication: ARTHRITIS
     Dosage: 1 DF, EVERY 4 HRS
     Route: 048
     Dates: start: 20110301
  8. ADVIL LIQUI-GELS [Suspect]

REACTIONS (6)
  - HAEMORRHAGE [None]
  - ARTHRALGIA [None]
  - WEIGHT INCREASED [None]
  - OEDEMA [None]
  - CONTUSION [None]
  - OEDEMA PERIPHERAL [None]
